FAERS Safety Report 9166218 (Version 1)
Quarter: 2013Q1

REPORT INFORMATION
  Report Type: Spontaneous
  Country: US (occurrence: US)
  Receive Date: 20130315
  Receipt Date: 20130315
  Transmission Date: 20140127
  Serious: Yes (Other)
  Sender: FDA-Public Use
  Company Number: US-ASTRAZENECA-2013SE15446

PATIENT
  Age: 66 Year
  Sex: Female
  Weight: 81.2 kg

DRUGS (4)
  1. SYMBICORT [Suspect]
     Indication: ASTHMA
     Dosage: 160/4.5 MCGS TWO PUFFS BID
     Route: 055
     Dates: start: 2008
  2. SYMBICORT [Suspect]
     Indication: ASTHMA
     Dosage: 160/4.5 MCGS ONE PUFFS BID
     Route: 055
     Dates: start: 2008
  3. LISINOPRIL [Suspect]
     Indication: HYPERTENSION
     Route: 048
  4. ALBUTEROL [Concomitant]
     Indication: ASTHMA
     Dosage: PRN
     Route: 055

REACTIONS (8)
  - Cataract [Unknown]
  - Tendonitis [Unknown]
  - Hypothyroidism [Unknown]
  - Weaning failure [Unknown]
  - Weight decreased [Unknown]
  - Intentional drug misuse [Unknown]
  - Hypertension [Unknown]
  - Blood glucose increased [Unknown]
